FAERS Safety Report 7504056-9 (Version None)
Quarter: 2011Q2

REPORT INFORMATION
  Report Type: 
  Country: None (occurrence: None)
  Receive Date: 20110524
  Receipt Date: 20110524
  Transmission Date: 20111010
  Serious: Yes (Other)
  Sender: FDA-Public Use
  Company Number: None

PATIENT
  Age: 34 Year
  Sex: Female
  Weight: 87.5442 kg

DRUGS (1)
  1. DOCETAXEL [Suspect]
     Indication: BREAST CANCER METASTATIC
     Dosage: 146.3MG X1 IV
     Route: 042
     Dates: start: 20110315

REACTIONS (1)
  - INFUSION RELATED REACTION [None]
